FAERS Safety Report 15454424 (Version 1)
Quarter: 2018Q4

REPORT INFORMATION
  Report Type: Spontaneous
  Country: HR (occurrence: HR)
  Receive Date: 20181002
  Receipt Date: 20181002
  Transmission Date: 20190204
  Serious: Yes (Hospitalization, Other)
  Sender: FDA-Public Use
  Company Number: HR-AMGEN-HRVSP2018134969

PATIENT
  Age: 59 Year
  Sex: Female

DRUGS (17)
  1. FILGRASTIM [Suspect]
     Active Substance: FILGRASTIM
     Indication: PROPHYLAXIS
     Dosage: UNK
     Route: 065
     Dates: start: 2017
  2. FOLINIC ACID [Suspect]
     Active Substance: LEUCOVORIN
     Indication: RECTOSIGMOID CANCER METASTATIC
     Dosage: UNK
     Route: 065
     Dates: start: 201706, end: 2017
  3. VECTIBIX [Suspect]
     Active Substance: PANITUMUMAB
     Indication: RECTOSIGMOID CANCER METASTATIC
     Dosage: UNK
     Route: 065
     Dates: start: 201706, end: 2017
  4. IRINOTECAN [Suspect]
     Active Substance: IRINOTECAN
     Dosage: UNK (DOSE REDUCTION)
     Route: 065
     Dates: start: 2017, end: 2017
  5. CAPECITABINE. [Suspect]
     Active Substance: CAPECITABINE
     Indication: RECTOSIGMOID CANCER METASTATIC
     Dosage: UNK
     Route: 065
     Dates: start: 201806, end: 201806
  6. IRINOTECAN [Suspect]
     Active Substance: IRINOTECAN
     Indication: RECTOSIGMOID CANCER METASTATIC
     Dosage: UNK
     Route: 065
     Dates: start: 201706, end: 2018
  7. VECTIBIX [Suspect]
     Active Substance: PANITUMUMAB
     Dosage: UNK (REGULAR IN 2.5-3 WEEK)
     Route: 065
     Dates: start: 2017, end: 2018
  8. VECTIBIX [Suspect]
     Active Substance: PANITUMUMAB
     Dosage: UNK
     Route: 065
     Dates: start: 201808
  9. FOLINIC ACID [Suspect]
     Active Substance: LEUCOVORIN
     Dosage: UNK (REGULAR IN 2.5-3 WEEK)
     Route: 065
     Dates: start: 2017, end: 2018
  10. 5 FU [Suspect]
     Active Substance: FLUOROURACIL
     Dosage: UNK
     Route: 065
     Dates: start: 201808
  11. VECTIBIX [Suspect]
     Active Substance: PANITUMUMAB
     Dosage: UNK (DOSE REDUCTION)
     Route: 065
     Dates: start: 2017, end: 2017
  12. FOLINIC ACID [Suspect]
     Active Substance: LEUCOVORIN
     Dosage: UNK (DOSE REDUCTION)
     Route: 065
     Dates: start: 2017, end: 2017
  13. 5 FU [Suspect]
     Active Substance: FLUOROURACIL
     Indication: RECTOSIGMOID CANCER METASTATIC
     Dosage: UNK
     Route: 065
     Dates: start: 201706, end: 2017
  14. FOLINIC ACID [Suspect]
     Active Substance: LEUCOVORIN
     Dosage: UNK
     Route: 065
     Dates: start: 201808
  15. 5 FU [Suspect]
     Active Substance: FLUOROURACIL
     Dosage: UNK (DOSE REDUCTION)
     Route: 065
     Dates: start: 2017, end: 2017
  16. IRINOTECAN [Suspect]
     Active Substance: IRINOTECAN
     Dosage: UNK
     Route: 065
     Dates: start: 201808
  17. IRINOTECAN [Suspect]
     Active Substance: IRINOTECAN
     Dosage: UNK (REGULAR IN 2.5-3 WEEK)
     Route: 065
     Dates: start: 2017, end: 2018

REACTIONS (4)
  - Weight increased [Unknown]
  - Skin toxicity [Unknown]
  - Neutropenia [Unknown]
  - Palmar-plantar erythrodysaesthesia syndrome [Unknown]

NARRATIVE: CASE EVENT DATE: 2017
